FAERS Safety Report 10262688 (Version 2)
Quarter: 2014Q2

REPORT INFORMATION
  Report Type: Report from Study
  Country: US (occurrence: US)
  Receive Date: 20140626
  Receipt Date: 20140626
  Transmission Date: 20141212
  Serious: Yes (Life-Threatening, Other)
  Sender: FDA-Public Use
  Company Number: US-MYLANLABS-2013S1011745

PATIENT
  Age: 53 Year
  Sex: Male

DRUGS (1)
  1. CLOZAPINE TABLETS [Suspect]
     Indication: SCHIZOPHRENIA, DISORGANISED TYPE
     Route: 048
     Dates: start: 2001, end: 20131218

REACTIONS (3)
  - Agranulocytosis [Recovered/Resolved]
  - Granulocytopenia [Not Recovered/Not Resolved]
  - Leukopenia [Recovered/Resolved]
